FAERS Safety Report 9806084 (Version 1)
Quarter: 2014Q1

REPORT INFORMATION
  Report Type: Spontaneous
  Country: GB (occurrence: None)
  Receive Date: 20140107
  Receipt Date: 20140107
  Transmission Date: 20141002
  Serious: Yes (Other)
  Sender: FDA-Public Use
  Company Number: AUR-APL-2013-10854

PATIENT
  Sex: Female

DRUGS (1)
  1. RIZATRIPTAN (RIZATRIPTAN) [Suspect]
     Indication: MIGRAINE

REACTIONS (3)
  - Depression [None]
  - Eczema [None]
  - Psoriasis [None]
